FAERS Safety Report 19857129 (Version 1)
Quarter: 2021Q3

REPORT INFORMATION
  Report Type: Spontaneous
  Country: GB (occurrence: GB)
  Receive Date: 20210920
  Receipt Date: 20210920
  Transmission Date: 20211014
  Serious: Yes (Hospitalization)
  Sender: FDA-Public Use
  Company Number: GB-TEVA-2021-GB-1954384

PATIENT
  Sex: Male

DRUGS (6)
  1. AMLODIPINE [Concomitant]
     Active Substance: AMLODIPINE BESYLATE
     Dosage: 2.5 MG
  2. WARFARIN [Suspect]
     Active Substance: WARFARIN
     Dosage: ANTIPHOSPHOLIPID SYNDROME, DOSE 6MG MON WED FRI, 5MG ROW
     Route: 065
  3. BENDROFLUMETHIAZIDE [Concomitant]
     Active Substance: BENDROFLUMETHIAZIDE
     Dosage: STRENGTH : 2.5 MG
  4. DORZOLAMIDE [Concomitant]
     Active Substance: DORZOLAMIDE
     Dosage: 20 MG/ML, 1 DROP INTO RIGHT EYE
  5. TIMOLOL. [Concomitant]
     Active Substance: TIMOLOL
     Dosage: 5 MG/ML, 1 DROP INTO RIGHT EYE
  6. AMLODIPINE [Concomitant]
     Active Substance: AMLODIPINE BESYLATE
     Dosage: 5 MG

REACTIONS (1)
  - Epistaxis [Unknown]
